FAERS Safety Report 7233108-6 (Version None)
Quarter: 2011Q1

REPORT INFORMATION
  Report Type: 
  Country: None (occurrence: None)
  Receive Date: 20110107
  Receipt Date: 20101228
  Transmission Date: 20110831
  Serious: Yes (Hospitalization, Other)
  Sender: FDA-Public Use
  Company Number: 024311

PATIENT
  Sex: Female

DRUGS (4)
  1. SPASFON /00765801/ (SPASFON) [Suspect]
     Dosage: ORAL
     Route: 048
  2. XYZAL [Suspect]
     Dosage: ONE TABLET AT NIGHT ORAL
     Route: 048
  3. CELESTAMINE /01758601/) (CELESTAMINE) (NOT SPECIFIED) [Suspect]
     Dosage: ORAL
     Route: 048
  4. DOLIPRANE (DOLIPRANE) [Suspect]
     Dosage: ORAL
     Route: 048

REACTIONS (2)
  - DRUG EXPOSURE DURING PREGNANCY [None]
  - COMPLICATION OF PREGNANCY [None]
